FAERS Safety Report 4840979-7 (Version None)
Quarter: 2005Q4

REPORT INFORMATION
  Report Type: 
  Country: None (occurrence: None)
  Receive Date: 20051130
  Receipt Date: 20050812
  Transmission Date: 20060501
  Serious: No
  Sender: FDA-Public Use
  Company Number: US-BRISTOL-MYERS SQUIBB COMPANY-13075494

PATIENT
  Age: 46 Year
  Sex: Female
  Weight: 54 kg

DRUGS (2)
  1. ABILIFY [Suspect]
     Route: 048
     Dates: start: 20050701
  2. AMITRIPTYLINE HCL [Concomitant]

REACTIONS (4)
  - ALOPECIA [None]
  - INCREASED APPETITE [None]
  - INSOMNIA [None]
  - WEIGHT DECREASED [None]
